FAERS Safety Report 9559518 (Version 1)
Quarter: 2013Q3

REPORT INFORMATION
  Report Type: Spontaneous
  Country: US (occurrence: None)
  Receive Date: 20130925
  Receipt Date: 20130925
  Transmission Date: 20140515
  Serious: Yes (Other)
  Sender: FDA-Public Use
  Company Number: 001600257A

PATIENT
  Age: 65 Year
  Sex: Female

DRUGS (7)
  1. PROACTIV SOLUTION RENEWING CLEANSER [Suspect]
     Indication: ACNE
     Dosage: ONCE QD DERMAL
     Dates: start: 20130902, end: 20130904
  2. PROACTIV SOLUTION REPAIRING TREATMENT [Suspect]
     Indication: ACNE
     Dosage: ONCE QD DERMAL
     Dates: start: 20130902, end: 20130904
  3. PROACTIV BLACKHEAD DISSOLVING GEL [Suspect]
     Indication: ACNE
     Dosage: ONCE QD DERMAL
     Dates: start: 20120902, end: 20130904
  4. TAMOXIFEN [Concomitant]
  5. SIMVASTATIN [Concomitant]
  6. SERTRALINE [Concomitant]
  7. VITAMIN D [Concomitant]

REACTIONS (4)
  - Erythema [None]
  - Pruritus [None]
  - Urticaria [None]
  - Swelling [None]
